FAERS Safety Report 17325840 (Version 3)
Quarter: 2022Q2

REPORT INFORMATION
  Report Type: Spontaneous
  Country: NL (occurrence: NL)
  Receive Date: 20200127
  Receipt Date: 20220428
  Transmission Date: 20220721
  Serious: Yes (Life-Threatening, Other)
  Sender: FDA-Public Use
  Company Number: NL-DALECO-2019-NL-000105

PATIENT
  Sex: Female

DRUGS (4)
  1. OLANZAPINE [Interacting]
     Active Substance: OLANZAPINE
     Indication: Sleep disorder
     Dosage: 1 DOSAGE FORM, QID (ONE TABLET, 4 TIMES DAILY (AS NECESSARY))
     Dates: start: 201508
  2. OLANZAPINE [Interacting]
     Active Substance: OLANZAPINE
     Dosage: 2.5 MILLIGRAM, PRN (1 TO 2 TIMES A WEEK, NO MORE THAN 2.5 MG EACH TIME.)
  3. TRANYLCYPROMINE SULFATE [Interacting]
     Active Substance: TRANYLCYPROMINE SULFATE
     Indication: Depression
     Dosage: 20 MILLIGRAM, Q2D
     Dates: start: 201508
  4. MIRENA [Concomitant]
     Active Substance: LEVONORGESTREL
     Dosage: UNK

REACTIONS (4)
  - Hypertensive crisis [Recovered/Resolved]
  - Contraindicated product administered [Not Recovered/Not Resolved]
  - Diet noncompliance [Unknown]
  - Drug interaction [Unknown]

NARRATIVE: CASE EVENT DATE: 20180801
